FAERS Safety Report 4616302-X (Version None)
Quarter: 2005Q1

REPORT INFORMATION
  Report Type: 
  Country: None (occurrence: None)
  Receive Date: 20050321
  Receipt Date: 20050308
  Transmission Date: 20050727
  Serious: No
  Sender: FDA-Public Use
  Company Number: 05H-163-0293595-00

PATIENT
  Age: 76 Year
  Sex: Male

DRUGS (5)
  1. BUPIVACAINE HCL [Suspect]
     Indication: POST PROCEDURAL PAIN
     Dosage: ONCE, EPIDURAL
     Route: 008
  2. MIDAZOLAM HYDROCHLORIDE [Suspect]
     Indication: SEDATION
     Dosage: 2 MG, INTRAVENOUS
     Route: 042
  3. BUPIVACAINE [Suspect]
     Indication: POST PROCEDURAL PAIN
     Dosage: 0.0625%, CONTINUOUS INFUSION
  4. FENTANYL [Suspect]
     Indication: POST PROCEDURAL PAIN
     Dosage: 10 MCG/ML, CONTINUOUS INFUSION
  5. CETACAINE [Concomitant]

REACTIONS (2)
  - DRUG INEFFECTIVE [None]
  - HICCUPS [None]
